FAERS Safety Report 6213383-7 (Version None)
Quarter: 2009Q2

REPORT INFORMATION
  Report Type: 
  Country: None (occurrence: None)
  Receive Date: 20090601
  Receipt Date: 20081107
  Transmission Date: 20091009
  Serious: Yes (Death, Life-Threatening)
  Sender: FDA-Public Use
  Company Number: 2008-03854

PATIENT
  Age: 77 Year
  Sex: Male
  Weight: 55 kg

DRUGS (16)
  1. VELCADE [Suspect]
     Indication: MULTIPLE MYELOMA
     Dosage: 2.2 MG, INTRAVENOUS
     Route: 042
     Dates: start: 20080929, end: 20081002
  2. CNT0328(CNT0328) VIAL [Suspect]
     Indication: MULTIPLE MYELOMA
     Dosage: 250 MG, INTRAVENOUS
     Route: 042
     Dates: start: 20080929, end: 20080929
  3. PLACEBO [Suspect]
     Indication: MULTIPLE MYELOMA
     Dosage: 250 MG, INTRAVENOUS
     Route: 042
     Dates: start: 20080929, end: 20080929
  4. RED BLOOD CELLS [Concomitant]
  5. ZOLEDRONIC ACID [Concomitant]
  6. ALLOPURINOL [Concomitant]
  7. PANTOPRAZOLE SODIUM [Concomitant]
  8. LEVOFLOXACIN [Concomitant]
  9. BENFOTIAMINE (BENFOTIAMINE) [Concomitant]
  10. CALCIUM CARBONATE (CALCIUM CARBONATE) [Concomitant]
  11. POTASSIUM CHLORIDE [Concomitant]
  12. METOPROLOL (METOPROLOL) [Concomitant]
  13. SODIUM CHLORIDE [Concomitant]
  14. ERYTHROPOIETIN (ERYTHROPOIETIN) [Concomitant]
  15. PLATELETS [Concomitant]
  16. FILGRASTIM [Concomitant]

REACTIONS (9)
  - ARRHYTHMIA SUPRAVENTRICULAR [None]
  - BRONCHITIS [None]
  - HYPERCALCAEMIA [None]
  - HYPOKALAEMIA [None]
  - LEUKAEMIA PLASMACYTIC [None]
  - MALIGNANT NEOPLASM PROGRESSION [None]
  - NEUTROPENIA [None]
  - PNEUMONIA [None]
  - SEPSIS [None]
